FAERS Safety Report 20558736 (Version 1)
Quarter: 2022Q1

REPORT INFORMATION
  Report Type: Spontaneous
  Country: US (occurrence: US)
  Receive Date: 20220307
  Receipt Date: 20220307
  Transmission Date: 20220423
  Serious: No
  Sender: FDA-Public Use
  Company Number: US-SANOFI-00996935

PATIENT

DRUGS (1)
  1. LUMIZYME [Suspect]
     Active Substance: ALGLUCOSIDASE ALFA
     Dosage: UNK
     Dates: start: 20220228

REACTIONS (3)
  - Hypersensitivity [Unknown]
  - Sensation of foreign body [Unknown]
  - Nausea [Unknown]

NARRATIVE: CASE EVENT DATE: 20220228
